FAERS Safety Report 7623988-4 (Version None)
Quarter: 2011Q3

REPORT INFORMATION
  Report Type: 
  Country: None (occurrence: None)
  Receive Date: 20110720
  Receipt Date: 20110620
  Transmission Date: 20111222
  Serious: No
  Sender: FDA-Public Use
  Company Number: US-BRISTOL-MYERS SQUIBB COMPANY-15844483

PATIENT
  Age: 86 Year
  Sex: Female

DRUGS (1)
  1. YERVOY [Suspect]
     Dosage: 1ST DOSE WAS ON MAY 27TH.
     Dates: start: 20110527

REACTIONS (1)
  - PRURITUS [None]
